FAERS Safety Report 6376151-1 (Version None)
Quarter: 2009Q3

REPORT INFORMATION
  Report Type: 
  Country: None (occurrence: None)
  Receive Date: 20090921
  Receipt Date: 20090915
  Transmission Date: 20100115
  Serious: Yes (Other)
  Sender: FDA-Public Use
  Company Number: AMI0014482

PATIENT
  Age: 89 Year
  Sex: Female

DRUGS (6)
  1. TIMOLOL MALEATE [Suspect]
     Indication: GLAUCOMA
     Dosage: 0.50% BID 046
     Route: 047
     Dates: end: 20090101
  2. QUETIAPINE FUMARATE [Suspect]
     Indication: DELUSIONAL DISORDER, PERSECUTORY TYPE
     Dosage: 37.5 MG DAILY
     Dates: end: 20090121
  3. QUETIAPINE FUMARATE [Concomitant]
  4. FLUNITRAZEPAM (FLUNIPAM) [Concomitant]
  5. OXAZEPAM (SOBRIL) [Concomitant]
  6. PILOCARPINE HCL (ISOPTOCARPINE) [Concomitant]

REACTIONS (3)
  - EXTRAPYRAMIDAL DISORDER [None]
  - HALLUCINATION [None]
  - NEUROLEPTIC MALIGNANT SYNDROME [None]
